FAERS Safety Report 7670182-7 (Version None)
Quarter: 2011Q3

REPORT INFORMATION
  Report Type: 
  Country: None (occurrence: None)
  Receive Date: 20110808
  Receipt Date: 20110728
  Transmission Date: 20111222
  Serious: Yes (Hospitalization, Other)
  Sender: FDA-Public Use
  Company Number: US-ASTRAZENECA-2010SE60931

PATIENT
  Age: 56 Year
  Sex: Female

DRUGS (2)
  1. SEROQUEL [Suspect]
     Indication: BIPOLAR DISORDER
     Route: 048
  2. SEROQUEL [Suspect]
     Route: 048

REACTIONS (8)
  - ANKLE FRACTURE [None]
  - LETHARGY [None]
  - FALL [None]
  - RESPIRATORY FAILURE [None]
  - COMA [None]
  - FOOT FRACTURE [None]
  - DRUG INTOLERANCE [None]
  - SOMNOLENCE [None]
